FAERS Safety Report 5475866-7 (Version None)
Quarter: 2007Q3

REPORT INFORMATION
  Report Type: 
  Country: None (occurrence: None)
  Receive Date: 20070925
  Receipt Date: 20061110
  Transmission Date: 20080115
  Serious: Yes (Hospitalization)
  Sender: FDA-Public Use
  Company Number: 2006BH014542

PATIENT
  Age: 57 Year
  Sex: Male

DRUGS (2)
  1. ATIVAN [Suspect]
     Indication: DRUG USE FOR UNKNOWN INDICATION
     Dates: start: 20060301, end: 20060301
  2. MORPHINE SULFATE [Suspect]
     Indication: DRUG USE FOR UNKNOWN INDICATION
     Dates: start: 20060301, end: 20060301

REACTIONS (11)
  - AGITATION [None]
  - BLOOD POTASSIUM DECREASED [None]
  - COMA [None]
  - FRUSTRATION [None]
  - HALLUCINATION, VISUAL [None]
  - HEART RATE DECREASED [None]
  - MIOSIS [None]
  - MUSCULAR WEAKNESS [None]
  - PARANOIA [None]
  - PCO2 INCREASED [None]
  - RESTLESSNESS [None]
